FAERS Safety Report 6418236-7 (Version None)
Quarter: 2009Q4

REPORT INFORMATION
  Report Type: 
  Country: None (occurrence: None)
  Receive Date: 20091028
  Receipt Date: 20091014
  Transmission Date: 20100525
  Serious: Yes (Death)
  Sender: FDA-Public Use
  Company Number: JP-GENENTECH-281300

PATIENT
  Age: 69 Year
  Sex: Male

DRUGS (4)
  1. AVASTIN [Suspect]
     Indication: LARGE INTESTINE CARCINOMA
     Dosage: 5 MG/KG, QD
     Route: 041
     Dates: start: 20090324, end: 20090324
  2. FLUOROURACIL [Suspect]
     Indication: LARGE INTESTINE CARCINOMA
     Dosage: 1 UNK, QD
     Route: 042
     Dates: start: 20090302, end: 20090325
  3. ELPLAT [Suspect]
     Indication: LARGE INTESTINE CARCINOMA
     Dosage: UNK
     Route: 041
     Dates: start: 20090302, end: 20090324
  4. LEVOLEUCOVORIN CALCIUM [Concomitant]
     Indication: DRUG USE FOR UNKNOWN INDICATION
     Dosage: UNK
     Dates: start: 20090302, end: 20090325

REACTIONS (3)
  - DEVICE RELATED INFECTION [None]
  - SEPSIS [None]
  - SUBDURAL HAEMATOMA [None]
